FAERS Safety Report 15963135 (Version 1)
Quarter: 2019Q1

REPORT INFORMATION
  Report Type: Spontaneous
  Country: US (occurrence: US)
  Receive Date: 20190214
  Receipt Date: 20190214
  Transmission Date: 20190417
  Serious: No
  Sender: FDA-Public Use
  Company Number: US-ALLERGAN-1831411US

PATIENT
  Sex: Female

DRUGS (1)
  1. TAZAROTENE - BP [Suspect]
     Active Substance: TAZAROTENE
     Indication: PRODUCT USED FOR UNKNOWN INDICATION
     Dosage: UNK
     Route: 061

REACTIONS (2)
  - Application site erythema [Unknown]
  - Application site irritation [Unknown]
